FAERS Safety Report 5036334-X (Version None)
Quarter: 2006Q2

REPORT INFORMATION
  Report Type: 
  Country: None (occurrence: None)
  Receive Date: 20060601
  Receipt Date: 20060307
  Transmission Date: 20061013
  Serious: Yes (Other)
  Sender: FDA-Public Use
  Company Number: US200603003386

PATIENT
  Sex: Female

DRUGS (1)
  1. CYMBALTA [Suspect]
     Indication: DEPRESSION
     Dosage: 60 MG

REACTIONS (3)
  - INTENTIONAL OVERDOSE [None]
  - PSYCHOMOTOR HYPERACTIVITY [None]
  - SUICIDAL IDEATION [None]
